FAERS Safety Report 18216391 (Version 1)
Quarter: 2020Q3

REPORT INFORMATION
  Report Type: Spontaneous
  Country: GB (occurrence: GB)
  Receive Date: 20200901
  Receipt Date: 20200901
  Transmission Date: 20201103
  Serious: Yes (Hospitalization, Other)
  Sender: FDA-Public Use
  Company Number: GB-AUROBINDO-AUR-APL-2020-017207

PATIENT
  Age: 33 Year
  Sex: Female

DRUGS (57)
  1. TRASTUZUMAB EMTANSINE [Suspect]
     Active Substance: ADO-TRASTUZUMAB EMTANSINE
     Indication: HER2 POSITIVE BREAST CANCER
     Dosage: 567 MILLIGRAM, ONCE A DAY, LOADING DOSE
     Route: 042
     Dates: start: 20160609, end: 20160609
  2. TRASTUZUMAB EMTANSINE [Suspect]
     Active Substance: ADO-TRASTUZUMAB EMTANSINE
     Dosage: 420 MILLIGRAM, EVERY 3 WEEK
     Route: 042
     Dates: start: 20160907, end: 20160926
  3. TRASTUZUMAB EMTANSINE [Suspect]
     Active Substance: ADO-TRASTUZUMAB EMTANSINE
     Dosage: 430.5 MILLIGRAM, EVERY 3 WEEKS
     Route: 042
     Dates: start: 20170224, end: 20170407
  4. CLEXANE [Concomitant]
     Active Substance: ENOXAPARIN SODIUM
     Indication: PRODUCT USED FOR UNKNOWN INDICATION
     Dosage: 40 MILLIGRAM, ONCE A DAY
     Route: 058
     Dates: start: 20160723, end: 20160723
  5. CLEXANE [Concomitant]
     Active Substance: ENOXAPARIN SODIUM
     Dosage: 1200 MILLIGRAM, ONCE A DAY
     Route: 058
     Dates: start: 20180212, end: 20180212
  6. CLEXANE [Concomitant]
     Active Substance: ENOXAPARIN SODIUM
     Dosage: UNK UNK, ONCE A DAY
     Route: 058
     Dates: start: 20180214
  7. HYDROCORTISONE. [Concomitant]
     Active Substance: HYDROCORTISONE
     Indication: PRODUCT USED FOR UNKNOWN INDICATION
     Dosage: 100 MILLIGRAM
     Route: 042
     Dates: start: 20160907
  8. METOCLOPRAMIDE. [Concomitant]
     Active Substance: METOCLOPRAMIDE
     Indication: PRODUCT USED FOR UNKNOWN INDICATION
     Dosage: 10 MILLIGRAM, AS NEEDED
     Route: 048
     Dates: start: 20160610
  9. TRASTUZUMAB EMTANSINE [Suspect]
     Active Substance: ADO-TRASTUZUMAB EMTANSINE
     Dosage: 451.5 MILLIGRAM,  EVERY 3 WEEKS
     Route: 042
     Dates: start: 20161021, end: 20161111
  10. TRASTUZUMAB EMTANSINE [Suspect]
     Active Substance: ADO-TRASTUZUMAB EMTANSINE
     Dosage: 420 MILLIGRAM EVERY 3 WEEKS
     Route: 042
     Dates: start: 20170224, end: 20170407
  11. TRASTUZUMAB EMTANSINE [Suspect]
     Active Substance: ADO-TRASTUZUMAB EMTANSINE
     Dosage: 280 MILLIGRAM, EVERY 3 WEEKS
     Route: 042
     Dates: start: 20180131
  12. CLEXANE [Concomitant]
     Active Substance: ENOXAPARIN SODIUM
     Dosage: 110 MILLIGRAM, ONCE A DAY
     Route: 058
     Dates: start: 20160825, end: 20160914
  13. ZOPICLONE [Concomitant]
     Active Substance: ZOPICLONE
     Indication: PRODUCT USED FOR UNKNOWN INDICATION
     Dosage: 3.75 MILLIGRAM, AS NEEDED
     Route: 048
     Dates: start: 20170618
  14. LEVETIRACETAM. [Concomitant]
     Active Substance: LEVETIRACETAM
     Dosage: 500 MILLIGRAM, 0.5 DAY
     Route: 048
     Dates: start: 20170617
  15. SALINE [Concomitant]
     Active Substance: SODIUM CHLORIDE
     Indication: PRODUCT USED FOR UNKNOWN INDICATION
     Dosage: 5 MILLILITER, 04 WEEK
     Route: 055
     Dates: start: 20170616
  16. TAMOXIFEN [Suspect]
     Active Substance: TAMOXIFEN
     Indication: BREAST CANCER METASTATIC
     Dosage: 20 MILLIGRAM, ONCE A DAY
     Route: 048
     Dates: start: 20170623, end: 20171228
  17. DOCETAXEL. [Suspect]
     Active Substance: DOCETAXEL
     Dosage: 108 MILLIGRAM, EVERY 3 WEEKS
     Route: 042
     Dates: start: 20161111
  18. TRASTUZUMAB EMTANSINE [Suspect]
     Active Substance: ADO-TRASTUZUMAB EMTANSINE
     Dosage: 451.5 MILLIGRAM, EVERY 3 WEEK
     Route: 042
     Dates: start: 20161111, end: 20170519
  19. PERTUZUMAB. [Suspect]
     Active Substance: PERTUZUMAB
     Indication: HER2 POSITIVE BREAST CANCER
     Dosage: 840 MILLIGRAM, ONCE A DAY, LOADING DOSE
     Route: 042
     Dates: start: 20160609
  20. PERTUZUMAB. [Suspect]
     Active Substance: PERTUZUMAB
     Dosage: 420 MILLIGRAM, EVERY 3 WEEKS
     Route: 042
     Dates: start: 20160701
  21. ADCAL D3 [Concomitant]
     Active Substance: CALCIUM CARBONATE\CHOLECALCIFEROL
     Indication: PRODUCT USED FOR UNKNOWN INDICATION
     Dosage: UNK UNK, TWO TIMES A DAY
     Route: 048
     Dates: start: 20170621
  22. CHLORPHENAMINE [Concomitant]
     Active Substance: CHLORPHENIRAMINE MALEATE
     Indication: PRODUCT USED FOR UNKNOWN INDICATION
     Dosage: 10 MILLIGRAM
     Route: 042
     Dates: start: 20160907, end: 20160907
  23. CHLORPHENAMINE [Concomitant]
     Active Substance: CHLORPHENIRAMINE MALEATE
     Dosage: 10 MILLIGRAM
     Route: 042
     Dates: start: 20160928
  24. ORAMORPH [Concomitant]
     Active Substance: MORPHINE SULFATE
     Indication: PRODUCT USED FOR UNKNOWN INDICATION
     Dosage: 2.5 MILLIGRAM, AS NEEDED
     Route: 048
     Dates: start: 20160828
  25. LEVOMEPROMAZINE [Concomitant]
     Active Substance: LEVOMEPROMAZINE
     Indication: PRODUCT USED FOR UNKNOWN INDICATION
     Dosage: 6.25 MILLIGRAM
     Route: 058
     Dates: start: 20170617
  26. DEXAMETHASONE. [Concomitant]
     Active Substance: DEXAMETHASONE
     Indication: PRODUCT USED FOR UNKNOWN INDICATION
     Dosage: 4 MILLIGRAM, 0.5 DAYS
     Route: 048
     Dates: start: 20160722, end: 20160723
  27. TRASTUZUMAB EMTANSINE [Suspect]
     Active Substance: ADO-TRASTUZUMAB EMTANSINE
     Dosage: 441 MILLIGRAM, EVERY 3 WEEKS
     Route: 042
     Dates: start: 20160907, end: 20160926
  28. CLEXANE [Concomitant]
     Active Substance: ENOXAPARIN SODIUM
     Dosage: 40 MILLIGRAM, ONCE A DAY
     Route: 058
     Dates: start: 20170616, end: 20170623
  29. RANITIDINE. [Concomitant]
     Active Substance: RANITIDINE
     Indication: PRODUCT USED FOR UNKNOWN INDICATION
     Dosage: 50 MILLIGRAM, AS NEEDED
     Route: 048
     Dates: start: 20170617
  30. DIFLAM [Concomitant]
     Indication: PRODUCT USED FOR UNKNOWN INDICATION
     Dosage: UNK, 0.33 DAYS
     Route: 048
     Dates: start: 20160722
  31. SEPTRIN [Concomitant]
     Active Substance: SULFAMETHOXAZOLE\TRIMETHOPRIM
     Indication: PRODUCT USED FOR UNKNOWN INDICATION
     Dosage: 2112 MILLIGRAM, 0.33 DAYS
     Route: 042
     Dates: start: 20160811
  32. TAMOXIFEN [Suspect]
     Active Substance: TAMOXIFEN
     Dosage: 20 MILLIGRAM, ONCE A DAY
     Route: 048
     Dates: start: 20180213
  33. TRASTUZUMAB EMTANSINE [Suspect]
     Active Substance: ADO-TRASTUZUMAB EMTANSINE
     Dosage: 441 MILLIGRAM,  EVERY 3 WEEKS
     Route: 042
     Dates: start: 20161202, end: 20170203
  34. AMOXICILLIN. [Concomitant]
     Active Substance: AMOXICILLIN
     Indication: PRODUCT USED FOR UNKNOWN INDICATION
     Dosage: UNK
     Route: 048
     Dates: start: 201712
  35. SALBUTAMOL [Concomitant]
     Active Substance: ALBUTEROL
     Indication: PRODUCT USED FOR UNKNOWN INDICATION
     Dosage: 2.5 MILLIGRAM, 0.33 DAY
     Route: 055
     Dates: start: 20160822, end: 20160908
  36. LEVETIRACETAM. [Concomitant]
     Active Substance: LEVETIRACETAM
     Indication: PRODUCT USED FOR UNKNOWN INDICATION
     Dosage: 1 GRAM
     Route: 042
     Dates: start: 20170616, end: 20170616
  37. DEXAMETHASONE. [Concomitant]
     Active Substance: DEXAMETHASONE
     Dosage: 8 MILLIGRAM, ONCE A DAY
     Route: 042
     Dates: start: 20160803, end: 20160805
  38. LANSOPRAZOLE. [Concomitant]
     Active Substance: LANSOPRAZOLE
     Dosage: 30 MILLIGRAM, ONCE A DAY
     Route: 048
     Dates: start: 20160809
  39. CODINE LINCTUS [Concomitant]
     Indication: PRODUCT USED FOR UNKNOWN INDICATION
     Dosage: 10 MILLILITER, AS NEEDED
     Route: 048
     Dates: start: 20170619
  40. DOCETAXEL. [Suspect]
     Active Substance: DOCETAXEL
     Indication: HER2 POSITIVE BREAST CANCER
     Dosage: 130 MILLIGRAM, EVERY 3 WEEKS
     Route: 042
     Dates: start: 20160701
  41. CASSIA SENNA [Concomitant]
     Active Substance: HERBALS\SENNOSIDES
     Indication: PRODUCT USED FOR UNKNOWN INDICATION
     Dosage: 15 MILLIGRAM, ONCE A DAY
     Route: 048
     Dates: start: 20160722
  42. DEXAMETHASONE. [Concomitant]
     Active Substance: DEXAMETHASONE
     Dosage: UNK UNK, ONCE A DAY
     Route: 048
     Dates: start: 20160805, end: 201609
  43. LANSOPRAZOLE. [Concomitant]
     Active Substance: LANSOPRAZOLE
     Indication: PRODUCT USED FOR UNKNOWN INDICATION
     Dosage: 30 MILLIGRAM, ONCE A DAY
     Route: 048
     Dates: start: 20160722, end: 20160724
  44. RAMIPRIL. [Concomitant]
     Active Substance: RAMIPRIL
     Indication: PRODUCT USED FOR UNKNOWN INDICATION
     Dosage: 2.3 MILLIGRAM, ONCE A DAY
     Route: 048
     Dates: start: 20160722
  45. DOCETAXEL. [Suspect]
     Active Substance: DOCETAXEL
     Dosage: 110 MILLIGRAM, EVERY 3 WEEKS
     Route: 042
     Dates: start: 20160907, end: 20161021
  46. TRASTUZUMAB EMTANSINE [Suspect]
     Active Substance: ADO-TRASTUZUMAB EMTANSINE
     Dosage: 420 MILLIGRAM EVERY 3 WEEK
     Route: 042
     Dates: start: 20161202, end: 20170203
  47. TRASTUZUMAB EMTANSINE [Suspect]
     Active Substance: ADO-TRASTUZUMAB EMTANSINE
     Dosage: 472.5 MILLIGRAM EVERY 3 WEEK
     Route: 042
     Dates: start: 20170519, end: 20171228
  48. TRASTUZUMAB EMTANSINE [Suspect]
     Active Substance: ADO-TRASTUZUMAB EMTANSINE
     Dosage: 472.5 MILLIGRAM,  EVERY 3 WEEKS
     Route: 042
     Dates: start: 20170612, end: 20171228
  49. CLEXANE [Concomitant]
     Active Substance: ENOXAPARIN SODIUM
     Dosage: 40 MILLIGRAM, ONCE A DAY
     Route: 058
     Dates: start: 20160817, end: 20160914
  50. MEROPENEM. [Concomitant]
     Active Substance: MEROPENEM
     Indication: PRODUCT USED FOR UNKNOWN INDICATION
     Dosage: 1 GRAM, 0.33 DAYS
     Route: 042
     Dates: start: 20160809
  51. FILGRASTIM [Concomitant]
     Active Substance: FILGRASTIM
     Indication: PRODUCT USED FOR UNKNOWN INDICATION
     Dosage: 300 MICROGRAM
     Route: 058
     Dates: start: 20160731
  52. TRASTUZUMAB EMTANSINE [Suspect]
     Active Substance: ADO-TRASTUZUMAB EMTANSINE
     Dosage: 420 MILLIGRAM, EVERY 3 WEEKS
     Route: 042
     Dates: start: 20160701, end: 20160727
  53. TRASTUZUMAB EMTANSINE [Suspect]
     Active Substance: ADO-TRASTUZUMAB EMTANSINE
     Dosage: 451.5 MILLIGRAM, EVERY 3 WEEKS
     Route: 042
     Dates: start: 20170428, end: 20170519
  54. SALBUTAMOL [Concomitant]
     Active Substance: ALBUTEROL
     Dosage: 2.5 MILLIGRAM, AS NEEDED
     Route: 055
     Dates: start: 20170616
  55. COTRIMOXAZOLE [Concomitant]
     Active Substance: SULFAMETHOXAZOLE\TRIMETHOPRIM
     Indication: PRODUCT USED FOR UNKNOWN INDICATION
     Dosage: 483 MILLIGRAM
     Route: 048
     Dates: start: 20180131
  56. DOCUSATE [Concomitant]
     Active Substance: DOCUSATE
     Indication: PRODUCT USED FOR UNKNOWN INDICATION
     Dosage: 20 MILLIGRAM, ONCE A DAY
     Route: 048
     Dates: start: 20160722
  57. DEXAMETHASONE. [Concomitant]
     Active Substance: DEXAMETHASONE
     Dosage: 2 MILLIGRAM, ONCE A DAY
     Route: 048
     Dates: start: 20180111

REACTIONS (12)
  - Pneumonia [Recovered/Resolved]
  - Nausea [Recovered/Resolved]
  - Chest pain [Recovered/Resolved]
  - Pain in jaw [Recovered/Resolved]
  - Excessive eye blinking [Recovered/Resolved]
  - Dyspnoea [Not Recovered/Not Resolved]
  - Seizure [Recovering/Resolving]
  - Diarrhoea [Recovered/Resolved]
  - Hyponatraemia [Recovered/Resolved]
  - Back pain [Recovering/Resolving]
  - Vomiting [Not Recovered/Not Resolved]
  - Lower respiratory tract infection [Recovered/Resolved]

NARRATIVE: CASE EVENT DATE: 20160722
